FAERS Safety Report 22234829 (Version 1)
Quarter: 2023Q2

REPORT INFORMATION
  Report Type: Spontaneous
  Country: US (occurrence: None)
  Receive Date: 20230419
  Receipt Date: 20230419
  Transmission Date: 20230722
  Serious: Yes (Other)
  Sender: FDA-Public Use
  Company Number: None

PATIENT
  Age: 35 Year
  Sex: Female
  Weight: 63.9 kg

DRUGS (12)
  1. METHYLPHENIDATE HYDROCHLORIDE [Suspect]
     Active Substance: METHYLPHENIDATE HYDROCHLORIDE
     Indication: Narcolepsy
     Dosage: OTHER QUANTITY : 60 TABLET(S);?FREQUENCY : EVERY 12 HOURS;?
     Route: 048
     Dates: start: 20230315, end: 20230328
  2. PANTOPRAZOLE [Concomitant]
     Active Substance: PANTOPRAZOLE
  3. OXCARBAZEPINE [Concomitant]
     Active Substance: OXCARBAZEPINE
  4. PREGABALIN [Concomitant]
     Active Substance: PREGABALIN
  5. MIDODRINE [Concomitant]
     Active Substance: MIDODRINE
  6. DROSPIRENONE / ETHINYL ESTRADIOL [Concomitant]
  7. PCOS METHOCARBAMOL [Concomitant]
  8. MAGNESIUM OXIDE [Concomitant]
     Active Substance: MAGNESIUM OXIDE
  9. FEXOFENADINE [Concomitant]
     Active Substance: FEXOFENADINE HYDROCHLORIDE
  10. LORATADINE [Concomitant]
     Active Substance: LORATADINE
  11. SIMETHICONE (DIMETHICONE) [Concomitant]
     Active Substance: DIMETHICONE
  12. POLYETHELINE GLYCOL [Concomitant]

REACTIONS (15)
  - Anxiety [None]
  - Loss of personal independence in daily activities [None]
  - Tremor [None]
  - Irritability [None]
  - Product substitution issue [None]
  - Fatigue [None]
  - Feeling cold [None]
  - Nausea [None]
  - Sensory disturbance [None]
  - Muscle spasms [None]
  - Anger [None]
  - Arthralgia [None]
  - Dehydration [None]
  - Hypothermia [None]
  - Blood pressure systolic increased [None]

NARRATIVE: CASE EVENT DATE: 20230328
